FAERS Safety Report 7760562-3 (Version None)
Quarter: 2011Q3

REPORT INFORMATION
  Report Type: 
  Country: None (occurrence: None)
  Receive Date: 20110919
  Receipt Date: 20110919
  Transmission Date: 20111222
  Serious: Yes (Hospitalization, Other)
  Sender: FDA-Public Use
  Company Number: US-AMGEN-USASP2011015345

PATIENT
  Age: 48 Year
  Sex: Female

DRUGS (3)
  1. TREXALL [Concomitant]
     Dosage: UNK
     Dates: start: 20070101
  2. ENBREL [Suspect]
     Dosage: 50 MG, QWK
     Dates: end: 20110906
  3. ENBREL [Suspect]
     Indication: RHEUMATOID ARTHRITIS
     Dosage: 50 MG, QWK
     Dates: start: 20101101, end: 20110216

REACTIONS (15)
  - DIZZINESS [None]
  - PERIPHERAL ARTERIAL OCCLUSIVE DISEASE [None]
  - HYPOAESTHESIA [None]
  - PNEUMONIA [None]
  - POOR PERIPHERAL CIRCULATION [None]
  - SOMNOLENCE [None]
  - THROMBOSIS [None]
  - MEMORY IMPAIRMENT [None]
  - CARDIOMEGALY [None]
  - DIABETES MELLITUS [None]
  - SYSTEMIC LUPUS ERYTHEMATOSUS [None]
  - VISUAL IMPAIRMENT [None]
  - BLOOD GLUCOSE FLUCTUATION [None]
  - CARDIAC FAILURE CONGESTIVE [None]
  - OEDEMA PERIPHERAL [None]
